FAERS Safety Report 8513738-1 (Version None)
Quarter: 2012Q3

REPORT INFORMATION
  Report Type: 
  Country: None (occurrence: None)
  Receive Date: 20120717
  Receipt Date: 20120705
  Transmission Date: 20120928
  Serious: Yes (Life-Threatening, Hospitalization)
  Sender: FDA-Public Use
  Company Number: FR-BRISTOL-MYERS SQUIBB COMPANY-16755548

PATIENT
  Age: 73 Year
  Sex: Male

DRUGS (6)
  1. ALLOPURINOL [Concomitant]
     Dosage: MRNG
     Route: 048
  2. LASIX [Concomitant]
     Route: 048
  3. ENALAPRIL MALEATE+LERCANIDIPINE HCL [Concomitant]
     Dosage: FILM COATED TABS
     Route: 048
  4. NEBIVOLOL [Concomitant]
     Dosage: IN THE MRNG 5MG TAB
     Route: 048
  5. GLUCOPHAGE [Suspect]
     Dosage: FILM-COATED TABS
     Route: 048
     Dates: end: 20120602
  6. FLUINDIONE [Concomitant]
     Dosage: 1DF=20MG TAB
     Route: 048
     Dates: start: 20110901, end: 20120602

REACTIONS (3)
  - METABOLIC ACIDOSIS [None]
  - DRUG LEVEL INCREASED [None]
  - HYPOPROTHROMBINAEMIA [None]
